FAERS Safety Report 15480638 (Version 1)
Quarter: 2018Q4

REPORT INFORMATION
  Report Type: Spontaneous
  Country: US (occurrence: US)
  Receive Date: 20181010
  Receipt Date: 20181010
  Transmission Date: 20190205
  Serious: No
  Sender: FDA-Public Use
  Company Number: US-TEVA-2018-US-961092

PATIENT
  Sex: Female

DRUGS (1)
  1. DICLOFENAC W/MISOPROSTOL ACTAVIS [Suspect]
     Active Substance: DICLOFENAC SODIUM\MISOPROSTOL
     Indication: ARTHRITIS
     Dosage: DICLOFENAC SODIUM / MISOPROSTOL,75 MG / 0.2 MG

REACTIONS (2)
  - Drug ineffective [Unknown]
  - Gastrooesophageal reflux disease [Unknown]
